FAERS Safety Report 9203600 (Version 1)
Quarter: 2013Q1

REPORT INFORMATION
  Report Type: Spontaneous
  Country: JP (occurrence: None)
  Receive Date: 20130329
  Receipt Date: 20130329
  Transmission Date: 20140127
  Serious: Yes (Other)
  Sender: FDA-Public Use
  Company Number: SYM-2013-01762

PATIENT
  Age: 85 Year
  Sex: Male

DRUGS (5)
  1. HERBESSER R [Suspect]
     Indication: PRODUCT USED FOR UNKNOWN INDICATION
  2. ALDOMET (METHYLDOPA) (METHYLDOPA) [Concomitant]
  3. ADALAT CR (NIFEDIPINE) [Concomitant]
  4. PREMINENT (HYZAAR) (HYDROCHLOROTHIAZIDE, LOSARTAN POTASSIUM) [Concomitant]
  5. ALEVIATIN (PHENYTOIN) (PHENYTOIN) [Concomitant]

REACTIONS (1)
  - Rhabdomyolysis [None]
